FAERS Safety Report 7933888-8 (Version None)
Quarter: 2011Q4

REPORT INFORMATION
  Report Type: 
  Country: None (occurrence: None)
  Receive Date: 20111122
  Receipt Date: 20111118
  Transmission Date: 20120403
  Serious: Yes (Hospitalization)
  Sender: FDA-Public Use
  Company Number: US-B.I. PHARMACEUTICALS,INC./RIDGEFIELD-2011-BP-16314BP

PATIENT
  Sex: Female
  Weight: 88.45 kg

DRUGS (11)
  1. SPIRIVA [Suspect]
     Indication: DYSPNOEA
     Dosage: 18 MCG
     Route: 055
     Dates: start: 20110527
  2. SPIRIVA [Suspect]
     Indication: CHRONIC OBSTRUCTIVE PULMONARY DISEASE
  3. ATENOLOL [Concomitant]
     Indication: HYPERTENSION
     Dosage: 50 MG
     Route: 048
  4. B6 [Concomitant]
     Dosage: 100 MG
  5. OMEPRAZOLE [Concomitant]
     Dosage: 20 MG
  6. ASPIRIN [Concomitant]
  7. POTASSIUM [Concomitant]
     Dosage: 10 MG
  8. VITAMIN D [Concomitant]
     Dosage: 2000 U
  9. FUROSEMIDE [Concomitant]
     Dosage: 40 MG
  10. FOSAMAX [Concomitant]
  11. VITAMIN B-12 [Concomitant]
     Dosage: 500 MG

REACTIONS (4)
  - DRY MOUTH [None]
  - DYSPHONIA [None]
  - DYSPNOEA [None]
  - DRY THROAT [None]
